FAERS Safety Report 6839748-8 (Version None)
Quarter: 2010Q3

REPORT INFORMATION
  Report Type: 
  Country: None (occurrence: None)
  Receive Date: 20100708
  Receipt Date: 20100630
  Transmission Date: 20110219
  Serious: Yes (Death)
  Sender: FDA-Public Use
  Company Number: 2010JP001928

PATIENT
  Age: 80 Year
  Sex: Female
  Weight: 54.3 kg

DRUGS (7)
  1. VESICARE [Suspect]
     Indication: HYPERTONIC BLADDER
     Dosage: 5 MG, UID/QD, ORAL
     Route: 048
     Dates: start: 20090325
  2. BONALON (ALENDRONATE SODIUM) PER ORAL NOS. 35 MG [Concomitant]
  3. ONEALFA (ALFACALCIDOL) TABLET, 1 UG [Concomitant]
  4. MOBIC (MELOXICAM) PER ORAL NOS, 10 MG [Concomitant]
  5. GASLON N (IRSOGLADINE MALEATE) ORODISPERSIBLE CR TABLET, 2 MG [Concomitant]
  6. SHAKUYAKUKANZOUTOU (HERBAL EXTRACT NOS) PER ORAL NOS [Concomitant]
  7. OPALMON (LIMAPROST) PER ORAL NOS, 5 UG [Concomitant]

REACTIONS (1)
  - MYELODYSPLASTIC SYNDROME [None]
